FAERS Safety Report 20231490 (Version 1)
Quarter: 2021Q4

REPORT INFORMATION
  Report Type: Spontaneous
  Country: US (occurrence: US)
  Receive Date: 20211227
  Receipt Date: 20211227
  Transmission Date: 20220303
  Serious: Yes (Other)
  Sender: FDA-Public Use
  Company Number: US-PFIZER INC-202101797943

PATIENT
  Age: 66 Year
  Sex: Male

DRUGS (1)
  1. SOMAVERT [Suspect]
     Active Substance: PEGVISOMANT
     Dosage: 10 MG PER DAY

REACTIONS (5)
  - Parkinson^s disease [Unknown]
  - Dementia [Unknown]
  - Prostate cancer [Unknown]
  - Neoplasm [Unknown]
  - Fall [Unknown]
